FAERS Safety Report 4429839-3 (Version None)
Quarter: 2004Q3

REPORT INFORMATION
  Report Type: 
  Country: None (occurrence: None)
  Receive Date: 20040818
  Receipt Date: 20040818
  Transmission Date: 20050211
  Serious: Yes (Hospitalization)
  Sender: FDA-Public Use
  Company Number: None

PATIENT
  Age: 77 Year
  Sex: Male
  Weight: 62 kg

DRUGS (6)
  1. ETHAMBUTOL HCL [Suspect]
     Indication: MYCOBACTERIUM AVIUM COMPLEX INFECTION
     Dosage: 1600MG QD ORAL
     Route: 048
     Dates: start: 20040407, end: 20040420
  2. INH [Concomitant]
  3. RIFAMPIN [Concomitant]
  4. PYRAZINAMIDE [Concomitant]
  5. PYRIDOXINE [Concomitant]
  6. TRAMADOL HCL [Concomitant]

REACTIONS (3)
  - CHILLS [None]
  - PYREXIA [None]
  - RASH ERYTHEMATOUS [None]
